FAERS Safety Report 16221849 (Version 1)
Quarter: 2019Q2

REPORT INFORMATION
  Report Type: Report from Study
  Country: ES (occurrence: ES)
  Receive Date: 20190422
  Receipt Date: 20190422
  Transmission Date: 20190711
  Serious: Yes (Other)
  Sender: FDA-Public Use
  Company Number: ES-AUROBINDO-AUR-APL-2019-022815

PATIENT

DRUGS (2)
  1. LINEZOLID FILM COATED TABLET [Suspect]
     Active Substance: LINEZOLID
     Indication: CENTRAL NERVOUS SYSTEM INFECTION
     Dosage: 1200 MILLIGRAM, DAILY (600 MG, 2X/DAY )
     Route: 048
  2. LINEZOLID FILM COATED TABLET [Suspect]
     Active Substance: LINEZOLID
     Indication: NOCARDIOSIS
     Dosage: UNK
     Route: 065

REACTIONS (3)
  - Lactic acidosis [Recovered/Resolved]
  - Anaemia [Unknown]
  - Asthenia [Unknown]
